FAERS Safety Report 6721442-5 (Version None)
Quarter: 2010Q2

REPORT INFORMATION
  Report Type: 
  Country: None (occurrence: None)
  Receive Date: 20100512
  Receipt Date: 20100507
  Transmission Date: 20101027
  Serious: Yes (Hospitalization)
  Sender: FDA-Public Use
  Company Number: BR-BRISTOL-MYERS SQUIBB COMPANY-15098668

PATIENT
  Age: 42 Year
  Sex: Male
  Weight: 44 kg

DRUGS (6)
  1. CARBOPLATIN [Suspect]
     Indication: LUNG NEOPLASM MALIGNANT
     Dosage: LAST DOSE ON 21OCT2009.1 DF = 1 AUC.
     Route: 042
     Dates: start: 20091021
  2. ALIMTA [Suspect]
     Indication: LUNG NEOPLASM MALIGNANT
     Dosage: LAST DOSE ON 21OCT2009
     Route: 042
     Dates: start: 20091021
  3. DEXAMETHASONE [Concomitant]
     Dates: start: 20091020
  4. FOLIC ACID [Concomitant]
     Dates: start: 20091016
  5. VITAMIN B-12 [Concomitant]
     Dates: start: 20090918
  6. MORPHINE SULFATE [Concomitant]
     Dates: start: 20090926

REACTIONS (2)
  - DYSPNOEA [None]
  - NEUTROPENIA [None]
